FAERS Safety Report 7830145-5 (Version None)
Quarter: 2011Q4

REPORT INFORMATION
  Report Type: 
  Country: None (occurrence: None)
  Receive Date: 20111021
  Receipt Date: 20111019
  Transmission Date: 20120403
  Serious: No
  Sender: FDA-Public Use
  Company Number: US-B.I. PHARMACEUTICALS,INC./RIDGEFIELD-2011-BP-22749BP

PATIENT
  Sex: Male
  Weight: 84.37 kg

DRUGS (6)
  1. AMIODARONE HCL [Concomitant]
     Dosage: 200 MG
  2. AMLODIPINE [Concomitant]
     Dosage: 5 MG
  3. PRADAXA [Suspect]
     Indication: ATRIAL FIBRILLATION
     Dosage: 300 MG
     Route: 048
     Dates: start: 20110528, end: 20110531
  4. HYDROCHLOROTHIAZIDE [Concomitant]
     Dosage: 12.5 MG
  5. LISINOPRIL [Concomitant]
     Dosage: 10 MG
  6. PRAVASTATIN [Concomitant]
     Dosage: 20 MG

REACTIONS (5)
  - FEELING ABNORMAL [None]
  - GAIT DISTURBANCE [None]
  - MYALGIA [None]
  - ADVERSE DRUG REACTION [None]
  - ASTHENIA [None]
